FAERS Safety Report 10152289 (Version 3)
Quarter: 2014Q2

REPORT INFORMATION
  Report Type: Report from Study
  Country: FR (occurrence: FR)
  Receive Date: 20140505
  Receipt Date: 20140604
  Transmission Date: 20141212
  Serious: Yes (Hospitalization)
  Sender: FDA-Public Use
  Company Number: FR-SA-2014SA055989

PATIENT
  Age: 75 Year
  Sex: Female

DRUGS (22)
  1. AFLIBERCEPT [Suspect]
     Indication: COLORECTAL CANCER METASTATIC
     Route: 041
     Dates: start: 20140206, end: 20140206
  2. AFLIBERCEPT [Suspect]
     Indication: COLORECTAL CANCER METASTATIC
     Route: 041
     Dates: start: 20140423, end: 20140423
  3. 5 FU [Suspect]
     Indication: COLORECTAL CANCER METASTATIC
     Route: 040
     Dates: start: 20140206, end: 20140206
  4. 5 FU [Suspect]
     Indication: COLORECTAL CANCER METASTATIC
     Route: 041
     Dates: start: 20140206, end: 20140206
  5. 5 FU [Suspect]
     Indication: COLORECTAL CANCER METASTATIC
     Route: 041
     Dates: start: 20140423, end: 20140423
  6. IRINOTECAN [Suspect]
     Indication: COLORECTAL CANCER METASTATIC
     Route: 041
     Dates: start: 20140206, end: 20140206
  7. IRINOTECAN [Suspect]
     Indication: COLORECTAL CANCER METASTATIC
     Route: 041
     Dates: start: 20140423, end: 20140423
  8. LEUCOVORIN [Suspect]
     Indication: COLORECTAL CANCER METASTATIC
     Route: 041
     Dates: start: 20140206, end: 20140206
  9. LEUCOVORIN [Suspect]
     Indication: COLORECTAL CANCER METASTATIC
     Route: 041
     Dates: start: 20140423, end: 20140423
  10. LOPERAMIDE [Concomitant]
     Dates: start: 201305
  11. XYLOCAINE [Concomitant]
     Dates: start: 20140220
  12. IMODIUM [Concomitant]
     Dates: start: 201305
  13. TIORFAN [Concomitant]
     Dates: start: 2013
  14. OROPERIDYS [Concomitant]
     Dates: start: 20140306
  15. AMLODIPINE [Concomitant]
     Dates: start: 20140220
  16. ANTIFUNGALS [Concomitant]
     Dates: start: 20140314
  17. HEXETIDINE [Concomitant]
     Dates: start: 20140314
  18. SODIUM BICARBONATE [Concomitant]
     Dates: start: 20140314
  19. FLUCONAZOLE [Concomitant]
     Dates: start: 20140311
  20. PARACETAMOL [Concomitant]
     Dates: start: 20140409
  21. EMEND [Concomitant]
     Dates: start: 20140409, end: 20140409
  22. OMEPRAZOLE [Concomitant]
     Dates: start: 20140409, end: 20140409

REACTIONS (1)
  - Diarrhoea [Not Recovered/Not Resolved]
